FAERS Safety Report 5248106-1 (Version None)
Quarter: 2007Q1

REPORT INFORMATION
  Report Type: 
  Country: None (occurrence: None)
  Receive Date: 20070227
  Receipt Date: 20070220
  Transmission Date: 20070707
  Serious: Yes (Other)
  Sender: FDA-Public Use
  Company Number: GB-GLAXOSMITHKLINE-B0459738A

PATIENT
  Age: 40 Year
  Sex: Female

DRUGS (2)
  1. LAMOTRIGINE [Suspect]
     Route: 048
     Dates: start: 20070124, end: 20070129
  2. VENLAFAXINE HCL [Concomitant]
     Route: 048
     Dates: start: 20060101

REACTIONS (4)
  - CHOKING SENSATION [None]
  - EPISTAXIS [None]
  - PYREXIA [None]
  - RASH ERYTHEMATOUS [None]
